FAERS Safety Report 6076448-9 (Version None)
Quarter: 2009Q1

REPORT INFORMATION
  Report Type: 
  Country: None (occurrence: None)
  Receive Date: 20090213
  Receipt Date: 20090206
  Transmission Date: 20090719
  Serious: No
  Sender: FDA-Public Use
  Company Number: US-JNJFOC-20090202309

PATIENT
  Sex: Female
  Weight: 62.14 kg

DRUGS (10)
  1. FENTANYL TRANSDERMAL SYSTEM [Suspect]
     Indication: FRACTURE
     Route: 062
  2. FENTANYL TRANSDERMAL SYSTEM [Suspect]
     Indication: OSTEOPOROSIS
     Route: 062
  3. TOPROL-XL [Concomitant]
     Indication: MITRAL VALVE DISEASE
     Route: 048
  4. CELEXA [Concomitant]
     Indication: DEPRESSION
     Route: 048
  5. TOPAMAX [Concomitant]
     Indication: MIGRAINE
     Route: 048
  6. PRAVACHOL [Concomitant]
     Indication: BLOOD CHOLESTEROL
     Route: 048
  7. SINGULAIR [Concomitant]
     Indication: ASTHMA
     Route: 048
  8. FLOVENT [Concomitant]
     Indication: ASTHMA
     Dosage: 220MG/U/220MCG
     Route: 055
  9. MAXAIR [Concomitant]
     Indication: ASTHMA
     Dosage: 2 INHALATIONS AS NEEDED
     Route: 055
  10. MIACALCIN [Concomitant]
     Indication: OSTEOPOROSIS
     Dosage: INHALATION/AEROSOL/ONE SPRAY DAILY/INHALATION
     Route: 055

REACTIONS (3)
  - DEVICE LEAKAGE [None]
  - DYSPNOEA [None]
  - WRONG TECHNIQUE IN DRUG USAGE PROCESS [None]
